FAERS Safety Report 7867606-9 (Version None)
Quarter: 2011Q4

REPORT INFORMATION
  Report Type: 
  Country: None (occurrence: None)
  Receive Date: 20111028
  Receipt Date: 20100902
  Transmission Date: 20120403
  Serious: No
  Sender: FDA-Public Use
  Company Number: US-BAYER-201032988NA

PATIENT
  Age: 39 Year
  Sex: Male
  Weight: 120.91 kg

DRUGS (3)
  1. ULTRAVIST 370 [Suspect]
     Indication: COMPUTERISED TOMOGRAM THORAX
  2. GASTROGRAFIN [Concomitant]
     Indication: ANGIOGRAM
     Route: 048
     Dates: start: 20100902, end: 20100902
  3. ULTRAVIST 370 [Suspect]
     Indication: CHEST PAIN
     Dosage: RIGHT ANTECUBITAL USING POWER INJECTOR @ A RATE OF 3.8 ML/SECOND
     Route: 042
     Dates: start: 20100902, end: 20100902

REACTIONS (1)
  - URTICARIA [None]
